FAERS Safety Report 9089430 (Version 1)
Quarter: 2013Q1

REPORT INFORMATION
  Report Type: Report from Study
  Country: US (occurrence: US)
  Receive Date: 20130201
  Receipt Date: 20130201
  Transmission Date: 20140127
  Serious: Yes (Life-Threatening)
  Sender: FDA-Public Use
  Company Number: US-MERCK-1301USA011669

PATIENT
  Sex: 0

DRUGS (2)
  1. VORINOSTAT [Suspect]
     Indication: MALIGNANT LYMPHOID NEOPLASM
     Dosage: 400MG DAILY
     Route: 048
  2. NIACINAMIDE [Suspect]
     Indication: MALIGNANT LYMPHOID NEOPLASM
     Dosage: DAILY, IN ESCALATING DOSES FROM 20-100 MG/KG
     Route: 048

REACTIONS (3)
  - Transaminases increased [Unknown]
  - Hypotension [Unknown]
  - Off label use [Unknown]
